FAERS Safety Report 9431749 (Version 1)
Quarter: 2013Q3

REPORT INFORMATION
  Report Type: Spontaneous
  Country: US (occurrence: US)
  Receive Date: 20130731
  Receipt Date: 20130731
  Transmission Date: 20140515
  Serious: No
  Sender: FDA-Public Use
  Company Number: US-009507513-1307USA012201

PATIENT
  Age: 69 Year
  Sex: Female

DRUGS (1)
  1. PRINZIDE [Suspect]
     Indication: HYPERTENSION
     Dosage: LISINOPRIL 20 MG AND HYDROCHLOROTHIAZIDE 12.5 MG
     Route: 048

REACTIONS (1)
  - Angioedema [Recovered/Resolved]
